FAERS Safety Report 16204631 (Version 2)
Quarter: 2019Q2

REPORT INFORMATION
  Report Type: Spontaneous
  Country: GB (occurrence: GB)
  Receive Date: 20190416
  Receipt Date: 20190530
  Transmission Date: 20190711
  Serious: Yes (Death, Life-Threatening, Hospitalization)
  Sender: FDA-Public Use
  Company Number: GB-MYLANLABS-2019M1036480

PATIENT
  Age: 63 Year
  Sex: Male

DRUGS (4)
  1. LAMOTRIGINE. [Concomitant]
     Active Substance: LAMOTRIGINE
     Indication: EPILEPSY
     Dosage: UNK
  2. CAPECITABINE. [Suspect]
     Active Substance: CAPECITABINE
     Indication: COLON CANCER
     Dosage: UNK
     Route: 048
     Dates: start: 20180725, end: 20180802
  3. ALMOTRIPTAN. [Concomitant]
     Active Substance: ALMOTRIPTAN
     Indication: EPILEPSY
     Dosage: UNK
  4. ORAMORPH [Concomitant]
     Active Substance: MORPHINE SULFATE
     Indication: ANALGESIC THERAPY
     Dosage: UNK

REACTIONS (9)
  - Mouth ulceration [Not Recovered/Not Resolved]
  - Toxicity to various agents [Fatal]
  - Fatigue [Not Recovered/Not Resolved]
  - Pyrexia [Not Recovered/Not Resolved]
  - Neutropenia [Not Recovered/Not Resolved]
  - Neutropenic sepsis [Fatal]
  - Mucosal inflammation [Not Recovered/Not Resolved]
  - Colitis [Not Recovered/Not Resolved]
  - Dyspnoea [Not Recovered/Not Resolved]

NARRATIVE: CASE EVENT DATE: 20180803
